FAERS Safety Report 15657586 (Version 1)
Quarter: 2018Q4

REPORT INFORMATION
  Report Type: Spontaneous
  Country: US (occurrence: US)
  Receive Date: 20181126
  Receipt Date: 20181126
  Transmission Date: 20190205
  Serious: Yes (Other)
  Sender: FDA-Public Use
  Company Number: None

PATIENT
  Age: 12 Year
  Sex: Female
  Weight: 51.75 kg

DRUGS (2)
  1. MONTELUKAST SODIUM CHEWABLE TABLETS [Suspect]
     Active Substance: MONTELUKAST SODIUM
     Indication: HYPERSENSITIVITY
     Dosage: ?          QUANTITY:2 TABLET(S);?
     Route: 048
     Dates: start: 20111001, end: 20180929
  2. MONTELUKAST SODIUM CHEWABLE TABLETS [Suspect]
     Active Substance: MONTELUKAST SODIUM
     Indication: ASTHMA
     Dosage: ?          QUANTITY:2 TABLET(S);?
     Route: 048
     Dates: start: 20111001, end: 20180929

REACTIONS (11)
  - Insomnia [None]
  - Therapy change [None]
  - Wheezing [None]
  - Paraesthesia [None]
  - Intentional self-injury [None]
  - Agitation [None]
  - Pyrexia [None]
  - Fatigue [None]
  - Depression [None]
  - Irritability [None]
  - Disturbance in attention [None]

NARRATIVE: CASE EVENT DATE: 20180918
